FAERS Safety Report 7483674-0 (Version None)
Quarter: 2011Q2

REPORT INFORMATION
  Report Type: 
  Country: None (occurrence: None)
  Receive Date: 20110517
  Receipt Date: 20110510
  Transmission Date: 20111010
  Serious: Yes (Death, Hospitalization)
  Sender: FDA-Public Use
  Company Number: TR-SANOFI-AVENTIS-2011SA013997

PATIENT
  Age: 49 Year
  Sex: Male
  Weight: 88 kg

DRUGS (8)
  1. PREDNISOLONE [Suspect]
     Indication: PROSTATE CANCER
     Dates: start: 20110217, end: 20110226
  2. CABAZITAXEL [Suspect]
     Indication: PROSTATE CANCER
     Route: 042
     Dates: start: 20110217, end: 20110217
  3. ONDANSETRON [Concomitant]
  4. DEXAMETHASONE [Concomitant]
  5. RAMIPRIL [Concomitant]
  6. ATROPINE/DIPHENOXYLATE [Concomitant]
  7. KETOPROFEN [Concomitant]
  8. BELOC [Concomitant]

REACTIONS (2)
  - GASTROINTESTINAL HAEMORRHAGE [None]
  - NEUTROPENIC SEPSIS [None]
